FAERS Safety Report 10169515 (Version 1)
Quarter: 2014Q2

REPORT INFORMATION
  Report Type: Spontaneous
  Country: US (occurrence: US)
  Receive Date: 20140513
  Receipt Date: 20140513
  Transmission Date: 20141212
  Serious: Yes (Disabling, Other)
  Sender: FDA-Public Use
  Company Number: US-ACTAVIS-2014-09364

PATIENT
  Age: 5 Month
  Sex: 0

DRUGS (1)
  1. CARBOPLATIN (WATSON LABORATORIES) [Suspect]
     Indication: RETINOBLASTOMA
     Dosage: THREE SERIAL PERIOCULAR INJECTIONS
     Route: 050

REACTIONS (2)
  - Neoplasm recurrence [Not Recovered/Not Resolved]
  - Injection site fibrosis [Not Recovered/Not Resolved]
